FAERS Safety Report 7843773-8 (Version None)
Quarter: 2011Q4

REPORT INFORMATION
  Report Type: 
  Country: None (occurrence: None)
  Receive Date: 20111025
  Receipt Date: 20111010
  Transmission Date: 20120403
  Serious: Yes (Death, Other)
  Sender: FDA-Public Use
  Company Number: US-ROCHE-1003608

PATIENT

DRUGS (3)
  1. AVASTIN [Suspect]
     Indication: HEAD AND NECK CANCER
  2. HYDROXYUREA [Suspect]
     Indication: HEAD AND NECK CANCER
     Route: 048
  3. FLUOROURACIL [Suspect]
     Indication: HEAD AND NECK CANCER

REACTIONS (9)
  - TOXICITY TO VARIOUS AGENTS [None]
  - MUCOSAL INFLAMMATION [None]
  - PAIN [None]
  - DEEP VEIN THROMBOSIS [None]
  - NEUTROPENIA [None]
  - PROTEINURIA [None]
  - INFECTION [None]
  - LEUKOPENIA [None]
  - WEIGHT DECREASED [None]
